FAERS Safety Report 19537666 (Version 1)
Quarter: 2021Q3

REPORT INFORMATION
  Report Type: Spontaneous
  Country: US (occurrence: US)
  Receive Date: 20210713
  Receipt Date: 20210713
  Transmission Date: 20211014
  Serious: Yes (Hospitalization)
  Sender: FDA-Public Use
  Company Number: US-MYLANLABS-2021M1041549

PATIENT
  Age: 56 Year
  Sex: Female

DRUGS (3)
  1. TESTOSTERONE. [Suspect]
     Active Substance: TESTOSTERONE
     Indication: HORMONE THERAPY
     Dosage: UNK
     Route: 048
  2. ESTROGEN [Suspect]
     Active Substance: ESTROGENS
     Indication: HORMONE THERAPY
     Dosage: UNK
     Route: 065
  3. TESTOSTERONE. [Suspect]
     Active Substance: TESTOSTERONE
     Indication: HORMONE THERAPY
     Dosage: UNK
     Route: 061

REACTIONS (6)
  - Carotid artery stenosis [Unknown]
  - Arteriosclerosis [Unknown]
  - Fibromuscular dysplasia [Recovering/Resolving]
  - Splenic artery aneurysm [Unknown]
  - Hepatic artery aneurysm [Unknown]
  - Peripheral artery aneurysm [Unknown]
